FAERS Safety Report 4811795-7 (Version None)
Quarter: 2005Q4

REPORT INFORMATION
  Report Type: 
  Country: None (occurrence: None)
  Receive Date: 20051026
  Receipt Date: 20051010
  Transmission Date: 20060501
  Serious: No
  Sender: FDA-Public Use
  Company Number: GBS050918583

PATIENT
  Age: 35 Year
  Sex: Male

DRUGS (4)
  1. HUMALOG [Suspect]
     Indication: DIABETES MELLITUS INSULIN-DEPENDENT
     Dosage: 4 U
     Dates: start: 20050901, end: 20050901
  2. INSULIN GLARGINE [Concomitant]
  3. ACTRAPID              (INSULIN HUMAN) [Concomitant]
  4. INSULATARD NPH HUMAN [Concomitant]

REACTIONS (8)
  - BLOOD GLUCOSE INCREASED [None]
  - DYSPNOEA [None]
  - HEADACHE [None]
  - HYPERHIDROSIS [None]
  - HYPERSENSITIVITY [None]
  - HYPERTENSION [None]
  - HYPERVENTILATION [None]
  - MALAISE [None]
